FAERS Safety Report 6935760-9 (Version None)
Quarter: 2010Q3

REPORT INFORMATION
  Report Type: 
  Country: None (occurrence: None)
  Receive Date: 20100819
  Receipt Date: 20100819
  Transmission Date: 20110219
  Serious: No
  Sender: FDA-Public Use
  Company Number: None

PATIENT
  Sex: Male
  Weight: 64.9 kg

DRUGS (6)
  1. CYCLOPHOSPHAMIDE [Suspect]
     Dosage: 3800 MG
  2. CYTARABINE [Suspect]
     Dosage: 2240 MG
  3. MERCAPTOPURINE [Suspect]
     Dosage: 3200 MG
  4. METHOTREXATE [Suspect]
     Dosage: 45 MG
  5. PEG-L- ASPARAGINASE (K -H) [Suspect]
     Dosage: 9400 MG
  6. VINCRISTINE SULFATE [Suspect]
     Dosage: 8 MG

REACTIONS (1)
  - PLATELET COUNT ABNORMAL [None]
